FAERS Safety Report 7625727-X (Version None)
Quarter: 2011Q3

REPORT INFORMATION
  Report Type: 
  Country: None (occurrence: None)
  Receive Date: 20110721
  Receipt Date: 20110713
  Transmission Date: 20111222
  Serious: Yes (Death, Hospitalization)
  Sender: FDA-Public Use
  Company Number: HU-BRISTOL-MYERS SQUIBB COMPANY-15140122

PATIENT
  Age: 73 Year
  Sex: Male
  Weight: 78 kg

DRUGS (9)
  1. PEMETREXED DISODIUM [Suspect]
     Indication: NON-SMALL CELL LUNG CANCER
     Route: 042
     Dates: start: 20100511, end: 20100511
  2. NAVOBAN [Concomitant]
     Indication: PROPHYLAXIS
     Route: 065
  3. FOLIC ACID [Concomitant]
     Indication: PROPHYLAXIS
     Route: 065
  4. NEUPOGEN [Concomitant]
     Indication: WHITE BLOOD CELL COUNT DECREASED
     Route: 065
     Dates: start: 20100501
  5. CISPLATIN [Suspect]
     Indication: NON-SMALL CELL LUNG CANCER
     Route: 042
     Dates: start: 20100511, end: 20100511
  6. ONDANSERTRON HYDROCHLORIDE [Concomitant]
     Indication: PROPHYLAXIS
     Route: 065
  7. MEDROL [Concomitant]
     Indication: PROPHYLAXIS
     Route: 065
  8. NECITUMUMAB [Suspect]
     Indication: NON-SMALL CELL LUNG CANCER
     Route: 042
     Dates: start: 20100511, end: 20100518
  9. VITAMIN B-12 [Concomitant]
     Indication: PROPHYLAXIS
     Route: 065

REACTIONS (2)
  - DEATH [None]
  - ASTHENIA [None]
